FAERS Safety Report 11782975 (Version 1)
Quarter: 2015Q4

REPORT INFORMATION
  Report Type: Spontaneous
  Country: US (occurrence: US)
  Receive Date: 20151127
  Receipt Date: 20151127
  Transmission Date: 20160305
  Serious: Yes (Hospitalization)
  Sender: FDA-Public Use
  Company Number: US-APOTEX-2015AP014814

PATIENT
  Age: 82 Year
  Sex: Female

DRUGS (2)
  1. QUETIAPINE FUMARATE. [Suspect]
     Active Substance: QUETIAPINE FUMARATE
     Indication: PARANOIA
     Dosage: MULTIPLE PILLS
     Route: 048
  2. ACETAMINOPHEN. [Suspect]
     Active Substance: ACETAMINOPHEN
     Dosage: MULTIPLE PILLS
     Route: 048

REACTIONS (3)
  - Hypotension [Recovered/Resolved]
  - Accidental overdose [Recovered/Resolved]
  - Bradycardia [Recovered/Resolved]
